FAERS Safety Report 15362566 (Version 1)
Quarter: 2018Q4

REPORT INFORMATION
  Report Type: Spontaneous
  Country: LV (occurrence: LV)
  Receive Date: 20180907
  Receipt Date: 20180907
  Transmission Date: 20190204
  Serious: Yes (Other)
  Sender: FDA-Public Use
  Company Number: LV-GLAXOSMITHKLINE-LV2018GSK160689

PATIENT
  Age: 17 Year
  Sex: Female

DRUGS (5)
  1. PENICILLIN G BENZATHINE [Suspect]
     Active Substance: PENICILLIN G BENZATHINE
  2. AZITHROMYCINUM (AZITHROMYCIN) [Suspect]
     Active Substance: AZITHROMYCIN
     Dosage: 500 MG, QD
  3. PARACETAMOL [Suspect]
     Active Substance: ACETAMINOPHEN
  4. FERRUM [Suspect]
     Active Substance: FERROUS FUMARATE
  5. CEFUROXIME. [Suspect]
     Active Substance: CEFUROXIME
     Dosage: 750 MG, BID

REACTIONS (5)
  - Exposure during pregnancy [Unknown]
  - Live birth [Unknown]
  - Polyhydramnios [Unknown]
  - Treatment noncompliance [Unknown]
  - Premature rupture of membranes [Unknown]
